FAERS Safety Report 8488573-3 (Version None)
Quarter: 2012Q2

REPORT INFORMATION
  Report Type: 
  Country: None (occurrence: None)
  Receive Date: 20120626
  Receipt Date: 20120614
  Transmission Date: 20120825
  Serious: Yes (Other)
  Sender: FDA-Public Use
  Company Number: ADE 12-064

PATIENT
  Age: 57 Year
  Sex: Male
  Weight: 84.8 kg

DRUGS (7)
  1. FENTANYL [Concomitant]
  2. ROCURONIUM BROMIDE [Suspect]
     Indication: SURGERY
     Dosage: 50 MG INTRAVENOUS, ONCE
     Route: 042
     Dates: start: 20120612
  3. PROPOFOL [Concomitant]
  4. DECADRON [Concomitant]
  5. ROBINUL [Concomitant]
  6. TYLENOL IV [Concomitant]
  7. SEVOFLURANE [Concomitant]

REACTIONS (2)
  - THERAPEUTIC RESPONSE DECREASED [None]
  - MUSCLE TWITCHING [None]
